FAERS Safety Report 8353521-3 (Version None)
Quarter: 2012Q2

REPORT INFORMATION
  Report Type: 
  Country: None (occurrence: None)
  Receive Date: 20120511
  Receipt Date: 20110503
  Transmission Date: 20120825
  Serious: No
  Sender: FDA-Public Use
  Company Number: US-GLAXOSMITHKLINE-A0926659A

PATIENT
  Age: 53 Year
  Sex: Female
  Weight: 58.2 kg

DRUGS (7)
  1. ATIVAN [Concomitant]
  2. BENADRYL [Concomitant]
  3. VALACYCLOVIR HYDROCHLORIDE [Concomitant]
  4. IMODIUM A-D [Concomitant]
  5. TYKERB [Suspect]
     Indication: PRODUCT USED FOR UNKNOWN INDICATION
     Dosage: 1250MG PER DAY
     Route: 048
  6. IBUPROFEN [Concomitant]
  7. AMBIEN [Concomitant]

REACTIONS (7)
  - ABDOMINAL DISCOMFORT [None]
  - NASOPHARYNGITIS [None]
  - ONYCHALGIA [None]
  - HERPES ZOSTER [None]
  - AFFECT LABILITY [None]
  - ASTHENIA [None]
  - ONYCHOLYSIS [None]
